FAERS Safety Report 4985362-9 (Version None)
Quarter: 2006Q1

REPORT INFORMATION
  Report Type: 
  Country: None (occurrence: None)
  Receive Date: 20060309
  Receipt Date: 20051129
  Transmission Date: 20060701
  Serious: Yes (Other)
  Sender: FDA-Public Use
  Company Number: 426878

PATIENT

DRUGS (2)
  1. ACCUTANE [Suspect]
     Indication: OILY SKIN
  2. ACCUTANE [Suspect]
     Indication: PROPHYLAXIS

REACTIONS (1)
  - ABORTION INDUCED [None]
